FAERS Safety Report 5257674-5 (Version None)
Quarter: 2007Q1

REPORT INFORMATION
  Report Type: 
  Country: None (occurrence: None)
  Receive Date: 20070302
  Receipt Date: 20070214
  Transmission Date: 20070707
  Serious: Yes (Life-Threatening, Other)
  Sender: FDA-Public Use
  Company Number: 15622

PATIENT
  Age: 68 Year
  Sex: Female

DRUGS (4)
  1. ANZATAX. MFR: MAYNE [Suspect]
     Dosage: 330 MG PER_CYCLE IV
     Route: 042
     Dates: start: 20070104, end: 20070104
  2. SOLDESAN [Concomitant]
  3. TRIMETON [Concomitant]
  4. NAVOBAN. MFR: NOT SPECIFIED [Concomitant]

REACTIONS (1)
  - HYPERSENSITIVITY [None]
